FAERS Safety Report 17795724 (Version 4)
Quarter: 2020Q2

REPORT INFORMATION
  Report Type: Spontaneous
  Country: US (occurrence: US)
  Receive Date: 20200516
  Receipt Date: 20200604
  Transmission Date: 20200714
  Serious: No
  Sender: FDA-Public Use
  Company Number: US-HETERO-HET2020US00531

PATIENT
  Age: 79 Year
  Sex: Female
  Weight: 78 kg

DRUGS (2)
  1. LOSARTAN. [Suspect]
     Active Substance: LOSARTAN
     Indication: HYPERTENSION
     Dosage: 100 MG, QD (IN THE MORNING)
     Route: 048
     Dates: start: 202003
  2. LEVOTHYROXINE SODIUM W/LIOTHYRONINE [Concomitant]
     Indication: PRODUCT USED FOR UNKNOWN INDICATION
     Dosage: 75 MCG
     Route: 065

REACTIONS (5)
  - Hypotension [Unknown]
  - Product substitution issue [Unknown]
  - Sinusitis [Unknown]
  - Headache [Unknown]
  - Drug ineffective [Not Recovered/Not Resolved]
